FAERS Safety Report 5545610-3 (Version None)
Quarter: 2007Q4

REPORT INFORMATION
  Report Type: 
  Country: None (occurrence: None)
  Receive Date: 20071211
  Receipt Date: 20071128
  Transmission Date: 20080405
  Serious: Yes (Hospitalization)
  Sender: FDA-Public Use
  Company Number: GB-ELI_LILLY_AND_COMPANY-GB200711006852

PATIENT
  Age: 32 Year
  Sex: Male

DRUGS (1)
  1. PROZAC [Suspect]
     Dates: start: 20070201, end: 20070101

REACTIONS (10)
  - ALCOHOLISM [None]
  - BRAIN DAMAGE [None]
  - BRAIN SCAN ABNORMAL [None]
  - CEREBROVASCULAR ACCIDENT [None]
  - CONFUSIONAL STATE [None]
  - MEMORY IMPAIRMENT [None]
  - ROAD TRAFFIC ACCIDENT [None]
  - SPEECH DISORDER [None]
  - SUICIDAL IDEATION [None]
  - SYNCOPE [None]
